FAERS Safety Report 4633243-2 (Version None)
Quarter: 2005Q2

REPORT INFORMATION
  Report Type: 
  Country: None (occurrence: None)
  Receive Date: 20050412
  Receipt Date: 20050412
  Transmission Date: 20051028
  Serious: Yes (Hospitalization)
  Sender: FDA-Public Use
  Company Number: None

PATIENT
  Age: 58 Year
  Sex: Male

DRUGS (1)
  1. IRESSA [Suspect]
     Indication: NON-SMALL CELL LUNG CANCER STAGE IV
     Dosage: 250MG PO QD
     Route: 048
     Dates: start: 20050330, end: 20050406

REACTIONS (4)
  - CACHEXIA [None]
  - DYSPNOEA [None]
  - HYPONATRAEMIA [None]
  - HYPOXIA [None]
